FAERS Safety Report 7424215-3 (Version None)
Quarter: 2011Q2

REPORT INFORMATION
  Report Type: 
  Country: None (occurrence: None)
  Receive Date: 20110419
  Receipt Date: 20101029
  Transmission Date: 20111010
  Serious: Yes (Hospitalization, Other)
  Sender: FDA-Public Use
  Company Number: US-BAYER-201036613NA

PATIENT
  Age: 24 Year
  Sex: Female
  Weight: 113.38 kg

DRUGS (9)
  1. YAZ [Suspect]
     Indication: PRODUCT USED FOR UNKNOWN INDICATION
     Dosage: UNK
     Dates: start: 20060101, end: 20070101
  2. HYDROCODONE BITARTRATE AND ACETAMINOPHEN [Concomitant]
     Dosage: UNK
     Dates: start: 20070728
  3. AMOKSIKLAV [Concomitant]
     Dosage: UNK
     Dates: start: 20070821
  4. FLOMAX [Concomitant]
     Dosage: 0.4 MG, QD
     Dates: start: 20070913
  5. METRONIDAZOLE [Concomitant]
     Indication: VAGINITIS BACTERIAL
     Dosage: UNK
     Dates: start: 20061020
  6. ZANTAC [Concomitant]
     Dosage: 150 MG, PRN
  7. PRENATAL VITAMINS [Concomitant]
  8. IBUPROFEN [Concomitant]
     Dosage: UNK
     Dates: start: 20000101
  9. REGLAN [Concomitant]
     Dosage: 10 UNK, UNK

REACTIONS (3)
  - CHOLECYSTECTOMY [None]
  - CHOLELITHIASIS [None]
  - CHOLECYSTITIS CHRONIC [None]
